FAERS Safety Report 5342275-0 (Version None)
Quarter: 2007Q2

REPORT INFORMATION
  Report Type: 
  Country: None (occurrence: None)
  Receive Date: 20070601
  Receipt Date: 20070522
  Transmission Date: 20071010
  Serious: Yes (Death, Congenital Anomaly)
  Sender: FDA-Public Use
  Company Number: NL-JNJFOC-20070505712

PATIENT

DRUGS (2)
  1. REMICADE [Suspect]
     Indication: DRUG EXPOSURE DURING PREGNANCY
  2. AZATHIOPRINE [Concomitant]
     Indication: DRUG EXPOSURE DURING PREGNANCY

REACTIONS (2)
  - DEATH [None]
  - MUSCLE DISORDER [None]
